FAERS Safety Report 5336049-4 (Version None)
Quarter: 2007Q2

REPORT INFORMATION
  Report Type: 
  Country: None (occurrence: None)
  Receive Date: 20070302
  Receipt Date: 20070103
  Transmission Date: 20071010
  Serious: No
  Sender: FDA-Public Use
  Company Number: PHEH2007US00519

PATIENT
  Age: 79 Year
  Sex: Male

DRUGS (1)
  1. ENABLEX [Suspect]
     Indication: URINARY INCONTINENCE
     Dosage: 7.5 MG, QD
     Dates: start: 20061201

REACTIONS (1)
  - DYSPEPSIA [None]
